FAERS Safety Report 4496980-9 (Version None)
Quarter: 2004Q3

REPORT INFORMATION
  Report Type: 
  Country: None (occurrence: None)
  Receive Date: 20040928
  Receipt Date: 20040721
  Transmission Date: 20050211
  Serious: No
  Sender: FDA-Public Use
  Company Number: 04P-163-0267651-00

PATIENT
  Age: 58 Year
  Sex: Female
  Weight: 56.246 kg

DRUGS (9)
  1. HUMIRA [Suspect]
     Indication: RHEUMATOID ARTHRITIS
     Dosage: 40 MG, 1 IN 2 WK, SUBCUTANEOUS
     Dates: start: 20030101, end: 20040501
  2. PNEUMOVAX 23 [Concomitant]
  3. ADVAIR [Concomitant]
  4. FLUNISOLIDE [Concomitant]
  5. CONJUGATED ESTROGEN [Concomitant]
  6. ATORVASTATIN CALCIUM [Concomitant]
  7. CITALOPRAM HYDROBROMIDE [Concomitant]
  8. METHOTREXATE [Concomitant]
  9. FOLIC ACID [Concomitant]

REACTIONS (3)
  - PNEUMONIA BACTERIAL [None]
  - RED BLOOD CELL SEDIMENTATION RATE INCREASED [None]
  - RHEUMATOID ARTHRITIS [None]
